FAERS Safety Report 5688488-X (Version None)
Quarter: 2008Q1

REPORT INFORMATION
  Report Type: 
  Country: None (occurrence: None)
  Receive Date: 20080331
  Receipt Date: 20080326
  Transmission Date: 20080703
  Serious: Yes (Hospitalization)
  Sender: FDA-Public Use
  Company Number: DE-WYE-G01300608

PATIENT
  Sex: Male
  Weight: 66 kg

DRUGS (1)
  1. TYGACIL [Suspect]
     Indication: ABDOMINAL ABSCESS
     Dosage: 50 MG / 12 HOURS
     Route: 042
     Dates: start: 20080303, end: 20080319

REACTIONS (4)
  - BLOOD ALKALINE PHOSPHATASE INCREASED [None]
  - BLOOD BILIRUBIN INCREASED [None]
  - ENTEROCOCCAL INFECTION [None]
  - GAMMA-GLUTAMYLTRANSFERASE INCREASED [None]
